FAERS Safety Report 5173631-1 (Version None)
Quarter: 2006Q4

REPORT INFORMATION
  Report Type: 
  Country: None (occurrence: None)
  Receive Date: 20061208
  Receipt Date: 20061208
  Transmission Date: 20070319
  Serious: Yes (Hospitalization)
  Sender: FDA-Public Use
  Company Number: None

PATIENT
  Sex: Female
  Weight: 98 kg

DRUGS (7)
  1. CYCLOPHOSPHAMIDE [Suspect]
     Dosage: 2100 MG
  2. CYTARABINE [Suspect]
     Dosage: 4200 MG
  3. ETOPOSIDE [Suspect]
     Dosage: 336 MG
  4. IFOSFAMIDE [Suspect]
     Dosage: 8440 MG
  5. METHOTREXATE [Suspect]
     Dosage: 316 MG
  6. RITUXIMAB (MOAB C2B8 ANTI CD20, CHIMERIC) [Suspect]
     Dosage: 1555 MG
  7. VINCRISTINE SULFATE [Suspect]
     Dosage: 2 MG

REACTIONS (11)
  - ACUTE RESPIRATORY FAILURE [None]
  - CHILLS [None]
  - FEBRILE NEUTROPENIA [None]
  - HEADACHE [None]
  - HYPERBILIRUBINAEMIA [None]
  - LUNG INFILTRATION [None]
  - PAIN [None]
  - SINUS CONGESTION [None]
  - STAPHYLOCOCCAL BACTERAEMIA [None]
  - TRANSAMINASES INCREASED [None]
  - TREMOR [None]
